FAERS Safety Report 24592656 (Version 7)
Quarter: 2025Q4

REPORT INFORMATION
  Report Type: Report from Study
  Country: US (occurrence: US)
  Receive Date: 20241108
  Receipt Date: 20251231
  Transmission Date: 20260117
  Serious: Yes (Hospitalization, Other)
  Sender: CSL BEHRING
  Company Number: US-BEH-2024182380

PATIENT
  Age: 13 Year
  Sex: Female
  Weight: 53.3 kg

DRUGS (7)
  1. BERINERT [Suspect]
     Active Substance: HUMAN C1-ESTERASE INHIBITOR
     Indication: Hereditary angioedema
     Dosage: 3000 IU/KG, BIW
     Route: 058
     Dates: start: 20250618
  2. BERINERT [Suspect]
     Active Substance: HUMAN C1-ESTERASE INHIBITOR
     Indication: Prophylaxis
     Dosage: UNK
     Route: 065
  3. BERINERT [Suspect]
     Active Substance: HUMAN C1-ESTERASE INHIBITOR
     Dosage: 3300 IU, BIW
     Route: 058
     Dates: start: 201811
  4. ANDEMBRY [Suspect]
     Active Substance: GARADACIMAB-GXII
     Indication: Hereditary angioedema
     Dosage: 200 MG, QMT
     Route: 058
  5. ANDEMBRY [Suspect]
     Active Substance: GARADACIMAB-GXII
     Indication: Prophylaxis
  6. ANDEMBRY [Concomitant]
     Active Substance: GARADACIMAB-GXII
     Route: 065
  7. ICATIBANT ACETATE [Concomitant]
     Active Substance: ICATIBANT ACETATE

REACTIONS (16)
  - Hereditary angioedema [Recovered/Resolved]
  - Fall [Unknown]
  - Swelling [Recovered/Resolved]
  - Hereditary angioedema [Recovered/Resolved]
  - Hereditary angioedema [Recovering/Resolving]
  - Injection site pain [Not Recovered/Not Resolved]
  - COVID-19 [Unknown]
  - Hypersensitivity [Recovering/Resolving]
  - Injection site pain [Recovering/Resolving]
  - Product use issue [Unknown]
  - Refusal of treatment by patient [Recovering/Resolving]
  - Rash erythematous [Unknown]
  - Infusion site reaction [Unknown]
  - Infusion site pruritus [Unknown]
  - Infusion site swelling [Unknown]
  - Infusion site erythema [Unknown]

NARRATIVE: CASE EVENT DATE: 20240101
